FAERS Safety Report 22936565 (Version 2)
Quarter: 2024Q1

REPORT INFORMATION
  Report Type: Other
  Country: US (occurrence: None)
  Receive Date: 20230912
  Receipt Date: 20240304
  Transmission Date: 20240410
  Serious: Yes (Hospitalization, Other)
  Sender: FDA-Public Use
  Company Number: US-ROCHE-3418122

PATIENT
  Age: 58 Year
  Sex: Female

DRUGS (1)
  1. ESBRIET [Suspect]
     Active Substance: PIRFENIDONE
     Indication: Interstitial lung disease
     Dosage: TAKE 1 TABLET BY MOUTH EVERY 8 HOURS
     Route: 048
     Dates: start: 202203

REACTIONS (3)
  - Road traffic accident [Unknown]
  - Foot fracture [Unknown]
  - Ankle fracture [Unknown]

NARRATIVE: CASE EVENT DATE: 20230701
